FAERS Safety Report 14025001 (Version 2)
Quarter: 2017Q4

REPORT INFORMATION
  Report Type: Spontaneous
  Country: US (occurrence: US)
  Receive Date: 20170928
  Receipt Date: 20171016
  Transmission Date: 20180321
  Serious: No
  Sender: FDA-Public Use
  Company Number: US-SA-2017SA026478

PATIENT
  Age: 63 Year
  Sex: Female

DRUGS (1)
  1. AUBAGIO [Suspect]
     Active Substance: TERIFLUNOMIDE
     Indication: MULTIPLE SCLEROSIS
     Route: 065
     Dates: start: 201702

REACTIONS (5)
  - Decreased activity [Unknown]
  - Feeling abnormal [Unknown]
  - Hypersomnia [Unknown]
  - Soliloquy [Unknown]
  - Staring [Unknown]

NARRATIVE: CASE EVENT DATE: 201702
